FAERS Safety Report 5286189-3 (Version None)
Quarter: 2007Q2

REPORT INFORMATION
  Report Type: 
  Country: None (occurrence: None)
  Receive Date: 20070403
  Receipt Date: 20070403
  Transmission Date: 20071010
  Serious: Yes (Hospitalization)
  Sender: FDA-Public Use
  Company Number: None

PATIENT
  Age: 26 Year
  Sex: Male
  Weight: 72.5755 kg

DRUGS (1)
  1. ABILIFY [Suspect]
     Indication: PSYCHOTIC DISORDER
     Dosage: 30 MG 1X DAY PO
     Route: 048
     Dates: start: 20070218, end: 20070303

REACTIONS (10)
  - AMNESIA [None]
  - ANXIETY [None]
  - CATATONIA [None]
  - CONDITION AGGRAVATED [None]
  - EYE MOVEMENT DISORDER [None]
  - INSOMNIA [None]
  - MUSCLE SPASMS [None]
  - OCULAR HYPERAEMIA [None]
  - THINKING ABNORMAL [None]
  - UNEVALUABLE EVENT [None]
